FAERS Safety Report 9100032 (Version 2)
Quarter: 2014Q1

REPORT INFORMATION
  Report Type: Spontaneous
  Country: US (occurrence: US)
  Receive Date: 20130215
  Receipt Date: 20140304
  Transmission Date: 20141002
  Serious: No
  Sender: FDA-Public Use
  Company Number: US-PFIZER INC-2013057981

PATIENT
  Age: 54 Year
  Sex: Female
  Weight: 68.03 kg

DRUGS (9)
  1. LYRICA [Suspect]
     Indication: PAIN
     Dosage: 200 MG, 2X/DAY
     Route: 048
  2. LYRICA [Suspect]
     Indication: FIBROMYALGIA
     Dosage: 200 MG, 2X/DAY
     Route: 048
     Dates: end: 201312
  3. ZOLPIDEM TARTRATE [Suspect]
     Indication: SLEEP DISORDER
     Dosage: 10 MG, 1X/DAY (DAILY)
  4. OXYCODONE [Concomitant]
     Indication: PAIN
     Dosage: 10 MG, 2X/DAY
  5. DIAZEPAM [Concomitant]
     Dosage: 5 MG, UNK
  6. LORTAB [Concomitant]
     Indication: PAIN
     Dosage: 5/500 MG, UNK
  7. LUNESTA [Concomitant]
     Indication: SLEEP DISORDER
     Dosage: 3 MG, 1X/DAY
  8. VALIUM [Concomitant]
     Indication: SLEEP DISORDER
     Dosage: 5 MG, 1X/DAY
  9. SUBOXONE [Concomitant]
     Indication: PAIN
     Dosage: 8 MG, 1X/DAY

REACTIONS (7)
  - Feeling abnormal [Unknown]
  - Insomnia [Unknown]
  - Pain [Unknown]
  - Drug ineffective [Unknown]
  - Pain in extremity [Unknown]
  - Pain [Unknown]
  - Burning sensation [Unknown]
